FAERS Safety Report 12521823 (Version 1)
Quarter: 2016Q3

REPORT INFORMATION
  Report Type: Spontaneous
  Country: DE (occurrence: DE)
  Receive Date: 20160701
  Receipt Date: 20160701
  Transmission Date: 20161109
  Serious: Yes (Congenital Anomaly)
  Sender: FDA-Public Use
  Company Number: DE-009507513-1606DEU011168

PATIENT
  Age: 1 Day
  Sex: Male
  Weight: 4.49 kg

DRUGS (7)
  1. FLUOXETINE [Concomitant]
     Active Substance: FLUOXETINE HYDROCHLORIDE
     Dosage: UNK
     Route: 064
  2. FOLIC ACID (+) IODINE [Concomitant]
     Dosage: UNK
     Route: 064
  3. STILNOX [Suspect]
     Active Substance: ZOLPIDEM TARTRATE
     Dosage: UNK
     Route: 064
  4. TOPIRAMATE. [Concomitant]
     Active Substance: TOPIRAMATE
     Dosage: UNK
     Route: 064
  5. PERAZINE [Suspect]
     Active Substance: PERAZINE
     Dosage: UNK
     Route: 064
  6. LAMOTRIGINE. [Concomitant]
     Active Substance: LAMOTRIGINE
     Dosage: UNK
     Route: 064
  7. MIRTAZAPINE. [Suspect]
     Active Substance: MIRTAZAPINE
     Dosage: UNK UNK, QD

REACTIONS (1)
  - Plagiocephaly [Not Recovered/Not Resolved]

NARRATIVE: CASE EVENT DATE: 20151117
